FAERS Safety Report 4439139-3 (Version None)
Quarter: 2004Q3

REPORT INFORMATION
  Report Type: 
  Country: None (occurrence: None)
  Receive Date: 20040901
  Receipt Date: 20040806
  Transmission Date: 20050211
  Serious: Yes (Hospitalization)
  Sender: FDA-Public Use
  Company Number: GB-BRISTOL-MYERS SQUIBB COMPANY-12662870

PATIENT
  Age: 24 Year
  Sex: Female

DRUGS (2)
  1. ABILIFY [Suspect]
     Route: 048
  2. LORAZEPAM [Concomitant]

REACTIONS (5)
  - AMNESIA [None]
  - BLUNTED AFFECT [None]
  - CONFUSIONAL STATE [None]
  - DISORIENTATION [None]
  - HEPATO-LENTICULAR DEGENERATION [None]
